FAERS Safety Report 26163527 (Version 1)
Quarter: 2025Q4

REPORT INFORMATION
  Report Type: Spontaneous
  Country: CA (occurrence: CA)
  Receive Date: 20251216
  Receipt Date: 20251216
  Transmission Date: 20260118
  Serious: Yes (Other)
  Sender: JOHNSON AND JOHNSON
  Company Number: CA-JNJFOC-20251212229

PATIENT
  Age: 69 Year
  Sex: Female

DRUGS (4)
  1. INFLIXIMAB [Suspect]
     Active Substance: INFLIXIMAB
     Indication: Colitis ulcerative
     Route: 041
  2. INFLIXIMAB [Suspect]
     Active Substance: INFLIXIMAB
     Indication: Colitis ulcerative
     Route: 042
  3. INFLIXIMAB [Suspect]
     Active Substance: INFLIXIMAB
     Route: 042
  4. INFLIXIMAB [Suspect]
     Active Substance: INFLIXIMAB
     Indication: Colitis ulcerative

REACTIONS (19)
  - Abdominal pain lower [Recovering/Resolving]
  - Anal incontinence [Recovering/Resolving]
  - Condition aggravated [Recovering/Resolving]
  - Diarrhoea [Recovering/Resolving]
  - Faecal calprotectin increased [Recovering/Resolving]
  - Faeces pale [Recovering/Resolving]
  - Haematochezia [Recovering/Resolving]
  - Nasal dryness [Recovering/Resolving]
  - Oedema peripheral [Recovering/Resolving]
  - Pain [Recovering/Resolving]
  - Pain in extremity [Recovering/Resolving]
  - Proctalgia [Recovering/Resolving]
  - Secretion discharge [Recovering/Resolving]
  - Skin disorder [Recovering/Resolving]
  - Stress [Recovering/Resolving]
  - Unevaluable event [Recovering/Resolving]
  - Weight decreased [Recovering/Resolving]
  - Therapeutic response decreased [Unknown]
  - Off label use [Unknown]
